FAERS Safety Report 8237835-3 (Version None)
Quarter: 2012Q1

REPORT INFORMATION
  Report Type: 
  Country: None (occurrence: None)
  Receive Date: 20120326
  Receipt Date: 20100923
  Transmission Date: 20120608
  Serious: Yes (Hospitalization)
  Sender: FDA-Public Use
  Company Number: IMP_05036_2010

PATIENT
  Age: 46 Year
  Sex: Female
  Weight: 72.6 kg

DRUGS (6)
  1. METFORMIN HCL [Concomitant]
  2. HYZAAR [Concomitant]
  3. AMLODIPINE [Concomitant]
  4. ASPIRIN [Concomitant]
  5. LORATADINE AND PSEUDOEPHEDRINE SULFATE [Suspect]
     Indication: RHINITIS
     Dosage: (1.0 DF 1X2 HR ORAL)
     Route: 048
     Dates: start: 20100316, end: 20100331
  6. SIMVASTATIN [Concomitant]

REACTIONS (11)
  - CEREBROVASCULAR ACCIDENT [None]
  - ANURIA [None]
  - MOOD ALTERED [None]
  - RESTLESSNESS [None]
  - WEIGHT DECREASED [None]
  - RASH [None]
  - DRY MOUTH [None]
  - HYPERSENSITIVITY [None]
  - HEART RATE INCREASED [None]
  - DECREASED APPETITE [None]
  - INSOMNIA [None]
